FAERS Safety Report 8779238 (Version 2)
Quarter: 2012Q4

REPORT INFORMATION
  Report Type: 
  Country: BE (occurrence: BE)
  Receive Date: 20120912
  Receipt Date: 20121010
  Transmission Date: 20130627
  Serious: Yes (Other)
  Sender: FDA-Public Use
  Company Number: BE-009507513-1209BEL000041

PATIENT
  Age: 61 Year
  Sex: Female

DRUGS (5)
  1. PEGINTRON [Suspect]
     Indication: HEPATITIS C
     Dosage: 100 Microgram, qw
     Dates: start: 20120713
  2. REBETOL [Suspect]
     Indication: HEPATITIS C
     Dosage: 1000 mg, bid
     Dates: start: 20120713
  3. VICTRELIS [Suspect]
     Indication: HEPATITIS C
     Dosage: 2400 mg, tid
     Dates: start: 20120803
  4. CLEXANE (ENOXAPARIN SODIUM) [Concomitant]
     Dosage: UNK
  5. DAFALGAN [Concomitant]

REACTIONS (1)
  - Ankle fracture [Recovered/Resolved]
